FAERS Safety Report 6240196-2 (Version None)
Quarter: 2009Q2

REPORT INFORMATION
  Report Type: 
  Country: None (occurrence: None)
  Receive Date: 20090623
  Receipt Date: 20071126
  Transmission Date: 20091009
  Serious: No
  Sender: FDA-Public Use
  Company Number: US-ASTRAZENECA-2007UW27078

PATIENT
  Age: 77 Year
  Sex: Female
  Weight: 58.1 kg

DRUGS (6)
  1. PULMICORT FLEXHALER [Suspect]
     Indication: ASTHMA
     Route: 055
     Dates: start: 20071101
  2. SINGULAIR [Concomitant]
  3. SEREVENT [Concomitant]
  4. PREDNISONE TAB [Concomitant]
     Route: 048
  5. VITAMINS [Concomitant]
  6. PULMICORT [Concomitant]
     Route: 055
     Dates: start: 19990101, end: 20070101

REACTIONS (7)
  - ASTHMA [None]
  - BRONCHITIS [None]
  - COUGH [None]
  - FALL [None]
  - INCREASED UPPER AIRWAY SECRETION [None]
  - PRODUCTIVE COUGH [None]
  - TENDON RUPTURE [None]
